FAERS Safety Report 19132920 (Version 1)
Quarter: 2021Q2

REPORT INFORMATION
  Report Type: Spontaneous
  Country: US (occurrence: US)
  Receive Date: 20210413
  Receipt Date: 20210413
  Transmission Date: 20210717
  Serious: No
  Sender: FDA-Public Use
  Company Number: None

PATIENT
  Age: 77 Year
  Sex: Female

DRUGS (1)
  1. ADEMPAS [Suspect]
     Active Substance: RIOCIGUAT
     Indication: PULMONARY HYPERTENSION
     Route: 048
     Dates: start: 20210309, end: 20210413

REACTIONS (4)
  - Cardiac failure [None]
  - Lung disorder [None]
  - Respiratory disorder [None]
  - Anomalous pulmonary venous connection [None]

NARRATIVE: CASE EVENT DATE: 20210413
